FAERS Safety Report 5820075-2 (Version None)
Quarter: 2008Q3

REPORT INFORMATION
  Report Type: 
  Country: None (occurrence: None)
  Receive Date: 20080711
  Receipt Date: 20080704
  Transmission Date: 20090109
  Serious: Yes (Death)
  Sender: FDA-Public Use
  Company Number: WSDF-00738

PATIENT
  Sex: Female

DRUGS (3)
  1. WINRHO SDF [Suspect]
     Indication: IDIOPATHIC THROMBOCYTOPENIC PURPURA
     Dates: start: 20080626, end: 20080626
  2. TYLENOL PM [Concomitant]
  3. HYDROCODONE BITARTRATE [Concomitant]

REACTIONS (4)
  - ASTHENIA [None]
  - HEADACHE [None]
  - PAIN [None]
  - SLEEP DISORDER [None]
